FAERS Safety Report 6981371-9 (Version None)
Quarter: 2010Q3

REPORT INFORMATION
  Report Type: 
  Country: None (occurrence: None)
  Receive Date: 20100914
  Receipt Date: 20100804
  Transmission Date: 20110219
  Serious: Yes (Hospitalization)
  Sender: FDA-Public Use
  Company Number: US-BAXTER-2010BH006210

PATIENT
  Age: 56 Year
  Sex: Male
  Weight: 104 kg

DRUGS (12)
  1. HEPARIN SODIUM INJECTION [Suspect]
     Indication: CORONARY ANGIOPLASTY
     Route: 041
     Dates: start: 20080707, end: 20080707
  2. HEPARIN SODIUM INJECTION [Suspect]
     Indication: CORONARY ARTERIAL STENT INSERTION
     Route: 041
     Dates: start: 20080707, end: 20080707
  3. HEPARIN SODIUM INJECTION [Suspect]
     Indication: MYOCARDIAL INFARCTION
     Route: 041
     Dates: start: 20080707, end: 20080707
  4. HEPARIN SODIUM INJECTION [Suspect]
     Route: 040
     Dates: start: 20080707, end: 20080707
  5. HEPARIN SODIUM INJECTION [Suspect]
     Route: 040
     Dates: start: 20080707, end: 20080707
  6. HEPARIN SODIUM INJECTION [Suspect]
     Route: 040
     Dates: start: 20080707, end: 20080707
  7. NAPROSYN [Concomitant]
     Indication: PRODUCT USED FOR UNKNOWN INDICATION
     Route: 065
  8. LOVASTATIN [Concomitant]
     Indication: PRODUCT USED FOR UNKNOWN INDICATION
     Route: 065
  9. PLAVIX [Concomitant]
     Indication: PRODUCT USED FOR UNKNOWN INDICATION
     Route: 065
  10. VICODIN [Concomitant]
     Indication: PRODUCT USED FOR UNKNOWN INDICATION
     Route: 065
  11. LOVENOX [Concomitant]
     Indication: THROMBOSIS PROPHYLAXIS
     Route: 065
     Dates: start: 20080625, end: 20080708
  12. INTEGRILIN [Concomitant]
     Indication: CORONARY ANGIOPLASTY
     Route: 065
     Dates: start: 20080707

REACTIONS (3)
  - CHEST PAIN [None]
  - DYSPNOEA [None]
  - PARAESTHESIA [None]
